FAERS Safety Report 20298978 (Version 1)
Quarter: 2022Q1

REPORT INFORMATION
  Report Type: Spontaneous
  Country: IT (occurrence: IT)
  Receive Date: 20220105
  Receipt Date: 20220105
  Transmission Date: 20220423
  Serious: Yes (Other)
  Sender: FDA-Public Use
  Company Number: None

PATIENT
  Age: 59 Year
  Sex: Female
  Weight: 51 kg

DRUGS (1)
  1. SODIUM FERRIC GLUCONATE COMPLEX [Suspect]
     Active Substance: SODIUM FERRIC GLUCONATE COMPLEX
     Indication: Anaemia
     Dosage: 1 DF, QW
     Route: 042
     Dates: start: 20210908, end: 20210908

REACTIONS (2)
  - Azotaemia [Recovered/Resolved]
  - Dialysis hypotension [Recovered/Resolved]

NARRATIVE: CASE EVENT DATE: 20210908
